FAERS Safety Report 10613722 (Version 2)
Quarter: 2014Q4

REPORT INFORMATION
  Report Type: Report from Study
  Country: FR (occurrence: FR)
  Receive Date: 20141128
  Receipt Date: 20141128
  Transmission Date: 20150529
  Serious: Yes (Hospitalization)
  Sender: FDA-Public Use
  Company Number: FR-PFIZER INC-FR-WYE-G01817808

PATIENT
  Age: 57 Year
  Sex: Male

DRUGS (11)
  1. ARACYTINE [Suspect]
     Active Substance: CYTARABINE
     Indication: ACUTE MYELOID LEUKAEMIA
     Dosage: 200 MG/M2, CYCLIC (DAILY FROM DAY 1 TO DAY 7)
     Route: 041
     Dates: start: 20080122, end: 20080125
  2. TIENAM [Suspect]
     Active Substance: CILASTATIN SODIUM\IMIPENEM
     Dosage: 500 MG, 3X/DAY
     Route: 042
     Dates: start: 20080403, end: 20080403
  3. MYLOTARG [Suspect]
     Active Substance: GEMTUZUMAB OZOGAMICIN
     Dosage: 3 MG/M2, 1X/DAY (ON DAY 1)
     Route: 041
     Dates: start: 20080307, end: 20080307
  4. DAUNORUBICIN [Suspect]
     Active Substance: DAUNORUBICIN
     Indication: ACUTE MYELOID LEUKAEMIA
     Dosage: 60 MG/M2, CYCLIC (DAILY FROM DAY 1 TO DAY 3)
     Route: 041
     Dates: start: 20080124, end: 20080125
  5. TAHOR [Suspect]
     Active Substance: ATORVASTATIN CALCIUM
     Dosage: 10 MG, 1X/DAY
     Route: 048
     Dates: start: 20080331, end: 20080408
  6. EUPANTOL [Suspect]
     Active Substance: PANTOPRAZOLE SODIUM
     Dosage: 40 MG, 1X/DAY
     Route: 048
     Dates: start: 20080331, end: 20080408
  7. BACTRIM [Suspect]
     Active Substance: SULFAMETHOXAZOLE\TRIMETHOPRIM
     Dosage: 4 DF, 3X/DAY
     Route: 041
     Dates: start: 20080328, end: 20080408
  8. EFFEXOR [Suspect]
     Active Substance: VENLAFAXINE HYDROCHLORIDE
     Dosage: 50 MG, 2X/DAY
     Route: 048
     Dates: start: 20080405, end: 20080408
  9. DAUNORUBICIN [Suspect]
     Active Substance: DAUNORUBICIN
     Dosage: 60 MG/M2, DAILY (DAY 1)
     Route: 042
     Dates: start: 20080307, end: 20080307
  10. MYLOTARG [Suspect]
     Active Substance: GEMTUZUMAB OZOGAMICIN
     Indication: ACUTE MYELOID LEUKAEMIA
     Dosage: 3 MG/M2, CYCLIC (DAILY ON D1, D4 AND D7)
     Route: 041
     Dates: start: 20080124, end: 20081030
  11. ARACYTINE [Suspect]
     Active Substance: CYTARABINE
     Dosage: 1000 MG/M2, 1X/DAY (DAY 1 TO DAY 4)
     Route: 041
     Dates: start: 20080307, end: 20080310

REACTIONS (1)
  - Hepatitis cholestatic [Recovered/Resolved]

NARRATIVE: CASE EVENT DATE: 20080406
